FAERS Safety Report 4426667-X (Version None)
Quarter: 2004Q3

REPORT INFORMATION
  Report Type: 
  Country: None (occurrence: None)
  Receive Date: 20040816
  Receipt Date: 20040706
  Transmission Date: 20050211
  Serious: Yes (Other)
  Sender: FDA-Public Use
  Company Number: US-BRISTOL-MYERS SQUIBB COMPANY-12633004

PATIENT
  Age: 18 Year
  Sex: Female
  Weight: 84 kg

DRUGS (6)
  1. ABILIFY [Suspect]
     Indication: AFFECTIVE DISORDER
     Dosage: 10 MG 13-MAY-04, 20 MG 16-JUN-04, 30 MG 20-JUN-04, THEN D/C
     Route: 048
     Dates: start: 20040513, end: 20040704
  2. ABILIFY [Interacting]
     Indication: PARANOIA
     Dosage: 10 MG 13-MAY-04, 20 MG 16-JUN-04, 30 MG 20-JUN-04, THEN D/C
     Route: 048
     Dates: start: 20040513, end: 20040704
  3. ZOLOFT [Interacting]
     Indication: DEPRESSION
     Dosage: AM
     Route: 048
     Dates: start: 20040616
  4. ZOLOFT [Interacting]
     Indication: ANXIETY
     Dosage: AM
     Route: 048
     Dates: start: 20040616
  5. WELLBUTRIN SR [Concomitant]
     Dosage: IN THE MORNING
  6. VALTREX [Concomitant]

REACTIONS (4)
  - DRUG INTERACTION [None]
  - DYSKINESIA [None]
  - MUSCLE TWITCHING [None]
  - SWOLLEN TONGUE [None]
